FAERS Safety Report 6779690-4 (Version None)
Quarter: 2010Q2

REPORT INFORMATION
  Report Type: 
  Country: None (occurrence: None)
  Receive Date: 20100618
  Receipt Date: 20100607
  Transmission Date: 20101027
  Serious: Yes (Other)
  Sender: FDA-Public Use
  Company Number: AT-PFIZER INC-2010071683

PATIENT
  Age: 51 Year
  Sex: Male

DRUGS (9)
  1. DOXORUBICIN HCL [Suspect]
     Indication: MULTIPLE MYELOMA
     Dosage: 9 MG/M2 ON DAYS 1-4;
  2. BORTEZOMIB [Suspect]
     Indication: MULTIPLE MYELOMA
     Dosage: 1.3 MG/M2 ON DAYS 1, 4, 8 AND 11
     Route: 042
  3. DEXAMETHASONE [Suspect]
     Indication: MULTIPLE MYELOMA
     Dosage: 40 MG ON DAYS 1-4 OF EACH 21-DAY CYCLE
     Route: 048
  4. DEXAMETHASONE [Suspect]
     Dosage: 40 MG PER DAY ON DAYS 1-4, 9-12 AND 17-20 OF A 28-DAY CYCLE
  5. DEXAMETHASONE [Suspect]
     Dosage: 40 MG ONCE PER WEEK
  6. METAMIZOLE [Concomitant]
     Indication: ANALGESIC THERAPY
  7. OPIOIDS [Concomitant]
     Indication: ANALGESIC THERAPY
  8. EPOETIN ALFA [Concomitant]
     Indication: MULTIPLE MYELOMA
     Dosage: 10,000 IE THREE TIMES A WEEK
  9. ZOLEDRONIC ACID [Concomitant]
     Indication: MULTIPLE MYELOMA
     Dosage: 4 MG

REACTIONS (3)
  - FEBRILE NEUTROPENIA [None]
  - PYREXIA [None]
  - RENAL FAILURE [None]
